FAERS Safety Report 6146583-5 (Version None)
Quarter: 2009Q2

REPORT INFORMATION
  Report Type: 
  Country: None (occurrence: None)
  Receive Date: 20090407
  Receipt Date: 20090326
  Transmission Date: 20091009
  Serious: No
  Sender: FDA-Public Use
  Company Number: US-ELI_LILLY_AND_COMPANY-US200903007145

PATIENT
  Age: 61 Year
  Sex: Female

DRUGS (3)
  1. CYMBALTA [Suspect]
     Indication: MAJOR DEPRESSION
     Dosage: 120 MG, UNK
     Route: 048
     Dates: start: 20060601
  2. CYMBALTA [Suspect]
     Dosage: 30 MG, UNK
     Route: 048
     Dates: start: 20060701
  3. CYMBALTA [Suspect]
     Dosage: 60 MG, UNK
     Route: 048

REACTIONS (1)
  - LIVER FUNCTION TEST ABNORMAL [None]
